FAERS Safety Report 13286433 (Version 1)
Quarter: 2017Q1

REPORT INFORMATION
  Report Type: Spontaneous
  Country: JP (occurrence: JP)
  Receive Date: 20170301
  Receipt Date: 20170301
  Transmission Date: 20170428
  Serious: Yes (Life-Threatening, Other)
  Sender: FDA-Public Use
  Company Number: JP-BAUSCH-BL-2017-005385

PATIENT
  Age: 56 Year
  Sex: Male

DRUGS (3)
  1. FLUOROURACIL. [Suspect]
     Active Substance: FLUOROURACIL
     Indication: RECTAL CANCER
     Route: 065
  2. FOLINIC ACID [Concomitant]
     Active Substance: LEUCOVORIN
     Indication: RECTAL CANCER
     Dosage: 75 MG/BODY PER DAY FOR DAYS 1-28
  3. TEGAFUR/URACIL [Concomitant]
     Active Substance: TEGAFUR\URACIL
     Indication: RECTAL CANCER
     Dosage: 300 MG/BODY PER DAY FOR DAYS 1-28

REACTIONS (1)
  - Rectal perforation [Unknown]
